FAERS Safety Report 7888745-2 (Version None)
Quarter: 2011Q4

REPORT INFORMATION
  Report Type: 
  Country: None (occurrence: None)
  Receive Date: 20111103
  Receipt Date: 20111025
  Transmission Date: 20120403
  Serious: No
  Sender: FDA-Public Use
  Company Number: DE-ROCHE-796400

PATIENT
  Age: 55 Year
  Sex: Male

DRUGS (3)
  1. VINORELBINE [Suspect]
     Indication: BRONCHIAL CARCINOMA
     Dosage: 4 CYCLES GIVEN
     Route: 065
  2. CISPLATIN [Suspect]
     Indication: BRONCHIAL CARCINOMA
     Dosage: 4 CYCLES GIVEN
     Route: 065
  3. AVASTIN [Suspect]
     Indication: BRONCHIAL CARCINOMA
     Dosage: 4 CYCLES GIVEN
     Route: 042

REACTIONS (2)
  - EYE PAIN [None]
  - VISUAL IMPAIRMENT [None]
